FAERS Safety Report 6277930-1 (Version None)
Quarter: 2009Q3

REPORT INFORMATION
  Report Type: 
  Country: None (occurrence: None)
  Receive Date: 20090720
  Receipt Date: 20090709
  Transmission Date: 20100115
  Serious: Yes (Other)
  Sender: FDA-Public Use
  Company Number: 2009SP015098

PATIENT
  Sex: Female

DRUGS (4)
  1. DESLORATADINE [Suspect]
     Indication: EYE DISORDER
     Dates: start: 20080101, end: 20080101
  2. DESLORATADINE [Suspect]
     Indication: EYE DISORDER
     Dates: start: 20090707, end: 20090707
  3. DESLORATADINE [Suspect]
     Indication: EYE DISORDER
     Dates: start: 20090706
  4. ZOLOFT [Concomitant]

REACTIONS (4)
  - FEELING ABNORMAL [None]
  - INCORRECT DOSE ADMINISTERED [None]
  - MALAISE [None]
  - PHARYNGEAL OEDEMA [None]
